FAERS Safety Report 10975442 (Version 2)
Quarter: 2015Q2

REPORT INFORMATION
  Report Type: Spontaneous
  Country: BR (occurrence: BR)
  Receive Date: 20150401
  Receipt Date: 20150415
  Transmission Date: 20150821
  Serious: Yes (Hospitalization, Other)
  Sender: FDA-Public Use
  Company Number: BR-ELI_LILLY_AND_COMPANY-BR201503006927

PATIENT
  Sex: Female
  Weight: 81 kg

DRUGS (10)
  1. LOSARTAN [Concomitant]
     Active Substance: LOSARTAN
     Indication: RENAL DISORDER
     Dosage: UNK, UNKNOWN
     Route: 065
  2. HUMULIN N [Suspect]
     Active Substance: INSULIN HUMAN
     Indication: DIABETES MELLITUS
     Dosage: UNK UNK, OTHER
     Route: 058
  3. SINVASTATINA [Concomitant]
     Active Substance: SIMVASTATIN
     Indication: BLOOD DISORDER
     Dosage: UNK, UNKNOWN
     Route: 065
  4. SINVASTATINA [Concomitant]
     Active Substance: SIMVASTATIN
     Indication: ARTERIAL DISORDER
  5. FLUOXETINE [Concomitant]
     Active Substance: FLUOXETINE\FLUOXETINE HYDROCHLORIDE
     Dosage: UNK, UNKNOWN
     Route: 065
  6. ANCORON [Concomitant]
     Active Substance: AMIODARONE HYDROCHLORIDE
     Indication: CARDIAC DISORDER
     Dosage: UNK, UNKNOWN
     Route: 065
  7. HUMULIN R [Suspect]
     Active Substance: INSULIN HUMAN
     Indication: DIABETES MELLITUS
     Dosage: UNK UNK, OTHER
     Route: 058
  8. HIDROCLOROTIAZIDA [Concomitant]
     Active Substance: HYDROCHLOROTHIAZIDE
     Indication: RENAL DISORDER
     Dosage: UNK, UNKNOWN
     Route: 065
  9. OMEPRAZOL                          /00661201/ [Concomitant]
     Active Substance: OMEPRAZOLE
     Indication: ABDOMINAL PAIN UPPER
     Dosage: UNK, UNKNOWN
     Route: 065
  10. GABAPENTINA [Concomitant]
     Active Substance: GABAPENTIN
     Dosage: 300 DF, TID
     Route: 065

REACTIONS (6)
  - Thrombosis [Not Recovered/Not Resolved]
  - Arterial disorder [Not Recovered/Not Resolved]
  - Hypercoagulation [Unknown]
  - Visual impairment [Not Recovered/Not Resolved]
  - Pulmonary embolism [Recovered/Resolved]
  - Sickle cell anaemia [Not Recovered/Not Resolved]

NARRATIVE: CASE EVENT DATE: 2009
